FAERS Safety Report 4740454-4 (Version None)
Quarter: 2005Q3

REPORT INFORMATION
  Report Type: 
  Country: None (occurrence: None)
  Receive Date: 20050801
  Receipt Date: 20050614
  Transmission Date: 20060218
  Serious: Yes (Hospitalization)
  Sender: FDA-Public Use
  Company Number: 142365USA

PATIENT
  Age: 82 Year
  Sex: Female

DRUGS (1)
  1. ETODOLAC [Suspect]
     Indication: PAIN IN EXTREMITY
     Dosage: 600 MILLIGRAM QD ORAL
     Route: 048
     Dates: start: 20050425, end: 20050427

REACTIONS (2)
  - BLOOD PRESSURE INCREASED [None]
  - PALPITATIONS [None]
